FAERS Safety Report 15683867 (Version 1)
Quarter: 2018Q4

REPORT INFORMATION
  Report Type: Spontaneous
  Country: US (occurrence: US)
  Receive Date: 20181204
  Receipt Date: 20181204
  Transmission Date: 20190205
  Serious: No
  Sender: FDA-Public Use
  Company Number: US-AMGEN-USASP2018172273

PATIENT
  Age: 51 Year
  Sex: Male

DRUGS (4)
  1. PREDNISONE. [Suspect]
     Active Substance: PREDNISONE
     Indication: ERDHEIM-CHESTER DISEASE
     Dosage: UNK
     Route: 065
  2. INFLIXIMAB [Suspect]
     Active Substance: INFLIXIMAB
     Indication: ERDHEIM-CHESTER DISEASE
     Dosage: UNK
     Route: 065
  3. MTX [Suspect]
     Active Substance: METHOTREXATE SODIUM
     Indication: ERDHEIM-CHESTER DISEASE
     Dosage: UNK
     Route: 065
  4. ETANERCEPT [Suspect]
     Active Substance: ETANERCEPT
     Indication: ERDHEIM-CHESTER DISEASE
     Dosage: 25 MG, 2 TIMES/WK
     Route: 058

REACTIONS (5)
  - Pharyngeal mass [Unknown]
  - Disease progression [Unknown]
  - Arthralgia [Unknown]
  - Off label use [Unknown]
  - Dysphagia [Unknown]
